FAERS Safety Report 9081056 (Version 1)
Quarter: 2013Q1

REPORT INFORMATION
  Report Type: Spontaneous
  Country: IT (occurrence: IT)
  Receive Date: 20130130
  Receipt Date: 20130130
  Transmission Date: 20140127
  Serious: Yes (Hospitalization)
  Sender: FDA-Public Use
  Company Number: IT-SANOFI-AVENTIS-2013SA005919

PATIENT
  Age: 78 Year
  Sex: Female

DRUGS (5)
  1. CLOPIDOGREL BISULFATE [Suspect]
     Indication: MYOCARDIAL ISCHAEMIA
     Route: 048
     Dates: start: 20000101, end: 20121222
  2. BISOPROLOL [Concomitant]
  3. GLUCOPHAGE [Concomitant]
     Indication: DIABETES MELLITUS
  4. PEPTAZOL [Concomitant]
  5. AMARYL [Concomitant]

REACTIONS (2)
  - Asthenia [Recovering/Resolving]
  - Anaemia [Recovering/Resolving]
